FAERS Safety Report 25412096 (Version 1)
Quarter: 2025Q2

REPORT INFORMATION
  Report Type: Spontaneous
  Country: US (occurrence: US)
  Receive Date: 20250609
  Receipt Date: 20250609
  Transmission Date: 20250717
  Serious: Yes (Hospitalization, Other)
  Sender: RANBAXY
  Company Number: US-SUN PHARMACEUTICAL INDUSTRIES INC-2025R1-510713

PATIENT
  Age: 36 Year
  Sex: Female

DRUGS (1)
  1. NAPROXEN [Suspect]
     Active Substance: NAPROXEN
     Indication: Headache
     Route: 065

REACTIONS (4)
  - Peritonitis [Recovering/Resolving]
  - Pelvic abscess [Recovering/Resolving]
  - Gastric ulcer perforation [Recovering/Resolving]
  - Product administration error [Unknown]
